FAERS Safety Report 21489852 (Version 1)
Quarter: 2022Q4

REPORT INFORMATION
  Report Type: Spontaneous
  Country: DE (occurrence: DE)
  Receive Date: 20221021
  Receipt Date: 20221021
  Transmission Date: 20230113
  Serious: Yes (Hospitalization, Other)
  Sender: FDA-Public Use
  Company Number: DE-NOVARTISPH-NVSC2022DE235966

PATIENT
  Age: 78 Year
  Sex: Male

DRUGS (2)
  1. VALSARTAN [Suspect]
     Active Substance: VALSARTAN
     Indication: Product used for unknown indication
     Dosage: UNK
     Route: 065
     Dates: start: 2021, end: 2021
  2. VALSARTAN [Suspect]
     Active Substance: VALSARTAN
     Dosage: UNK
     Route: 065
     Dates: start: 2022

REACTIONS (8)
  - Cardiac failure [Unknown]
  - Hepatic cirrhosis [Unknown]
  - Ascites [Unknown]
  - Varices oesophageal [Unknown]
  - Angiopathy [Unknown]
  - Blood pressure abnormal [Unknown]
  - Glomerular filtration rate decreased [Unknown]
  - Ejection fraction abnormal [Unknown]

NARRATIVE: CASE EVENT DATE: 20210101
